FAERS Safety Report 13322127 (Version 1)
Quarter: 2017Q1

REPORT INFORMATION
  Report Type: Spontaneous
  Country: US (occurrence: US)
  Receive Date: 20170310
  Receipt Date: 20170310
  Transmission Date: 20170428
  Serious: Yes (Other)
  Sender: FDA-Public Use
  Company Number: US-TEVA-748059USA

PATIENT
  Age: 54 Year
  Sex: Male

DRUGS (3)
  1. FOLINIC ACID [Suspect]
     Active Substance: LEUCOVORIN
     Indication: COLON CANCER
     Dosage: RECEIVED ONE CYCLE
     Route: 065
  2. OXALIPLATIN INJECTION 50MG/10 ML AND 100MG/20ML [Suspect]
     Active Substance: OXALIPLATIN
     Indication: COLON CANCER
     Dosage: RECEIVED ONE CYCLE
     Route: 065
  3. FLUOROURACIL. [Suspect]
     Active Substance: FLUOROURACIL
     Indication: COLON CANCER
     Dosage: RECEIVED ONE CYCLE
     Route: 065

REACTIONS (2)
  - Bone marrow failure [Unknown]
  - Renal injury [Unknown]
